FAERS Safety Report 4778466-7 (Version None)
Quarter: 2005Q3

REPORT INFORMATION
  Report Type: 
  Country: None (occurrence: None)
  Receive Date: 20050923
  Receipt Date: 20050923
  Transmission Date: 20060218
  Serious: Yes (Hospitalization)
  Sender: FDA-Public Use
  Company Number: None

PATIENT
  Age: 17 Year
  Sex: Female
  Weight: 40.8237 kg

DRUGS (2)
  1. METHIMAZOLE [Suspect]
     Indication: BASEDOW'S DISEASE
     Dosage: 1 TABLET PO TID
     Route: 048
     Dates: start: 20050701, end: 20050801
  2. METHIMAZOLE [Suspect]
     Indication: HYPERTHYROIDISM
     Dosage: 1 TABLET PO TID
     Route: 048
     Dates: start: 20050701, end: 20050801

REACTIONS (1)
  - AGRANULOCYTOSIS [None]
